FAERS Safety Report 18368770 (Version 3)
Quarter: 2021Q1

REPORT INFORMATION
  Report Type: Spontaneous
  Country: US (occurrence: US)
  Receive Date: 20201010
  Receipt Date: 20210302
  Transmission Date: 20210419
  Serious: No
  Sender: FDA-Public Use
  Company Number: US-ELI_LILLY_AND_COMPANY-US202006012628

PATIENT
  Age: 65 Year
  Sex: Female

DRUGS (1)
  1. VERZENIO [Suspect]
     Active Substance: ABEMACICLIB
     Indication: PRODUCT USED FOR UNKNOWN INDICATION
     Dosage: UNK UNK, UNKNOWN
     Route: 048
     Dates: start: 202005

REACTIONS (12)
  - Diarrhoea [Unknown]
  - Pigmentation disorder [Unknown]
  - Pain [Unknown]
  - Back pain [Unknown]
  - Muscle spasms [Unknown]
  - Abdominal discomfort [Unknown]
  - Vomiting [Unknown]
  - Chest pain [Unknown]
  - Abdominal pain upper [Unknown]
  - Headache [Unknown]
  - Alopecia [Not Recovered/Not Resolved]
  - Hypotension [Unknown]

NARRATIVE: CASE EVENT DATE: 202005
